FAERS Safety Report 8210998-1 (Version None)
Quarter: 2012Q1

REPORT INFORMATION
  Report Type: 
  Country: None (occurrence: None)
  Receive Date: 20120315
  Receipt Date: 20120305
  Transmission Date: 20120608
  Serious: Yes (Other)
  Sender: FDA-Public Use
  Company Number: PHHY2012ES018857

PATIENT
  Age: 24 Year
  Sex: Female

DRUGS (1)
  1. METHERGINE [Suspect]
     Dosage: 60 DROPS DAILY
     Dates: start: 20120216, end: 20120219

REACTIONS (3)
  - ABDOMINAL DISTENSION [None]
  - ABDOMINAL PAIN UPPER [None]
  - BACK PAIN [None]
